FAERS Safety Report 7638169-8 (Version None)
Quarter: 2011Q3

REPORT INFORMATION
  Report Type: 
  Country: None (occurrence: None)
  Receive Date: 20110727
  Receipt Date: 20110718
  Transmission Date: 20111222
  Serious: Yes (Death)
  Sender: FDA-Public Use
  Company Number: GB-JNJFOC-20110700845

PATIENT
  Sex: Male

DRUGS (14)
  1. CELECOXIB [Concomitant]
     Route: 065
     Dates: start: 20051001
  2. FELODIPINE [Concomitant]
     Route: 065
     Dates: start: 20060301
  3. MEBEVERINE HYDROCHLORIDE [Concomitant]
     Route: 065
     Dates: start: 20090401
  4. ACETAMINOPHEN [Concomitant]
     Route: 065
     Dates: start: 20060301
  5. AMITRIPTYLINE HCL [Concomitant]
     Route: 065
     Dates: start: 20051001
  6. SALMETEROL [Concomitant]
     Route: 065
     Dates: start: 20090101
  7. CYCLIZINE [Concomitant]
     Route: 065
     Dates: start: 20090401
  8. OMEPRAZOLE [Concomitant]
     Route: 065
     Dates: start: 20080901
  9. FERROUS SULFATE TAB [Concomitant]
     Route: 065
     Dates: start: 20090101
  10. TRAMADOL HCL [Suspect]
     Indication: BACK PAIN
     Dosage: 50 MG CAPSULES 1-2 X3/4 PER DAY AS NEEDED FOR A DURATION OF 12 MONTHS
     Route: 048
     Dates: start: 20090901, end: 20100923
  11. BECLOMETHASONE DIPROPIONATE [Concomitant]
     Route: 065
  12. NEFOPAM HYDROCHLORIDE [Concomitant]
     Route: 065
     Dates: start: 20091001
  13. ALBUTEROL [Concomitant]
     Route: 065
     Dates: start: 20090101
  14. FLUOXETINE HYDROCHLORIDE [Concomitant]
     Route: 065
     Dates: start: 20051001

REACTIONS (3)
  - OVERDOSE [None]
  - DEATH [None]
  - CIRCULATORY COLLAPSE [None]
